FAERS Safety Report 5194608-6 (Version None)
Quarter: 2006Q4

REPORT INFORMATION
  Report Type: 
  Country: None (occurrence: None)
  Receive Date: 20061229
  Receipt Date: 20061220
  Transmission Date: 20070319
  Serious: Yes (Hospitalization)
  Sender: FDA-Public Use
  Company Number: US-JNJFOC-20061206143

PATIENT
  Sex: Female
  Weight: 54.43 kg

DRUGS (4)
  1. DURAGESIC-100 [Suspect]
     Indication: PAIN
     Route: 062
  2. FOLIC ACID [Concomitant]
     Indication: ANAEMIA
     Route: 048
  3. PROCRIT [Concomitant]
     Indication: ANAEMIA
     Route: 050
  4. OXYCODONE HCL [Concomitant]
     Indication: BREAKTHROUGH PAIN
     Route: 048

REACTIONS (1)
  - SICKLE CELL ANAEMIA [None]
